FAERS Safety Report 10518255 (Version 1)
Quarter: 2014Q4

REPORT INFORMATION
  Report Type: Spontaneous
  Country: US (occurrence: None)
  Receive Date: 20141014
  Receipt Date: 20141014
  Transmission Date: 20150528
  Serious: Yes (Death)
  Sender: FDA-Public Use
  Company Number: None

PATIENT
  Age: 47 Year
  Sex: Female

DRUGS (1)
  1. ETOPOSIDE. [Suspect]
     Active Substance: ETOPOSIDE
     Indication: BREAST CANCER
     Route: 048
     Dates: start: 20140916, end: 20140922

REACTIONS (1)
  - Oncologic complication [None]

NARRATIVE: CASE EVENT DATE: 20140922
